FAERS Safety Report 8359180-8 (Version None)
Quarter: 2012Q2

REPORT INFORMATION
  Report Type: 
  Country: None (occurrence: None)
  Receive Date: 20120511
  Receipt Date: 20120511
  Transmission Date: 20120825
  Serious: Yes (Other)
  Sender: FDA-Public Use
  Company Number: None

PATIENT
  Age: 60 Year
  Sex: Female
  Weight: 54.4316 kg

DRUGS (1)
  1. AUGMENTIN '875' [Suspect]
     Indication: ANIMAL BITE
     Dosage: 1 TABLET TWICE A DAY MOUTH
     Route: 048
     Dates: start: 20120417, end: 20120421

REACTIONS (3)
  - MOVEMENT DISORDER [None]
  - GAIT DISTURBANCE [None]
  - PAIN IN EXTREMITY [None]
